FAERS Safety Report 12308459 (Version 5)
Quarter: 2017Q1

REPORT INFORMATION
  Report Type: Spontaneous
  Country: US (occurrence: US)
  Receive Date: 20160427
  Receipt Date: 20170104
  Transmission Date: 20170428
  Serious: Yes (Other)
  Sender: FDA-Public Use
  Company Number: PHEH2016US010159

PATIENT
  Sex: Female
  Weight: 58.96 kg

DRUGS (2)
  1. ZOFRAN [Suspect]
     Active Substance: ONDANSETRON HYDROCHLORIDE
     Indication: VOMITING IN PREGNANCY
     Route: 048
     Dates: start: 200606, end: 200607
  2. ZOFRAN ODT [Suspect]
     Active Substance: ONDANSETRON HYDROCHLORIDE
     Indication: VOMITING IN PREGNANCY
     Route: 048

REACTIONS (8)
  - Maternal exposure during pregnancy [Unknown]
  - Peripheral artery stenosis [Unknown]
  - Pain [Unknown]
  - Anxiety [Unknown]
  - Gestational hypertension [Unknown]
  - Product use issue [Unknown]
  - Emotional distress [Unknown]
  - Intermittent claudication [Unknown]
